FAERS Safety Report 12203440 (Version 1)
Quarter: 2016Q1

REPORT INFORMATION
  Report Type: Spontaneous
  Country: US (occurrence: None)
  Receive Date: 20160321
  Receipt Date: 20160321
  Transmission Date: 20160526
  Serious: No
  Sender: FDA-Public Use
  Company Number: None

PATIENT
  Age: 33 Year
  Sex: Female

DRUGS (1)
  1. SOVALDI [Suspect]
     Active Substance: SOFOSBUVIR
     Indication: PRODUCT USED FOR UNKNOWN INDICATION
     Dosage: ORAL 047 400MG ORAL 1 QD
     Route: 048
     Dates: start: 201601

REACTIONS (1)
  - Sleep disorder [None]

NARRATIVE: CASE EVENT DATE: 20160203
